FAERS Safety Report 17577063 (Version 1)
Quarter: 2020Q1

REPORT INFORMATION
  Report Type: Spontaneous
  Country: GB (occurrence: GB)
  Receive Date: 20200324
  Receipt Date: 20200324
  Transmission Date: 20200409
  Serious: Yes (Other)
  Sender: FDA-Public Use
  Company Number: GB-MYLANLABS-2020M1029571

PATIENT
  Age: 81 Year
  Sex: Female

DRUGS (9)
  1. ADCAL                              /00056901/ [Concomitant]
     Active Substance: CARBAZOCHROME
  2. DOXYCYCLINE. [Suspect]
     Active Substance: DOXYCYCLINE
     Indication: DIABETIC FOOT INFECTION
     Dosage: 200 MILLIGRAM, QD
     Route: 048
     Dates: start: 20200213, end: 20200215
  3. WARFARIN [Concomitant]
     Active Substance: WARFARIN
  4. PANTOPRAZOLE [Concomitant]
     Active Substance: PANTOPRAZOLE
  5. BUMETANIDE. [Concomitant]
     Active Substance: BUMETANIDE
  6. ALLOPURINOL. [Concomitant]
     Active Substance: ALLOPURINOL
  7. COCODAMOL [Concomitant]
     Active Substance: ACETAMINOPHEN\CODEINE PHOSPHATE
  8. DULOXETINE. [Concomitant]
     Active Substance: DULOXETINE
  9. DIGOXIN. [Concomitant]
     Active Substance: DIGOXIN

REACTIONS (1)
  - Dyspnoea [Recovered/Resolved]

NARRATIVE: CASE EVENT DATE: 20200214
